FAERS Safety Report 5906936-4 (Version None)
Quarter: 2008Q4

REPORT INFORMATION
  Report Type: 
  Country: None (occurrence: None)
  Receive Date: 20081003
  Receipt Date: 20080922
  Transmission Date: 20090506
  Serious: Yes (Other)
  Sender: FDA-Public Use
  Company Number: US-JNJFOC-20080803101

PATIENT
  Sex: Male
  Weight: 92.08 kg

DRUGS (7)
  1. REMICADE [Suspect]
     Indication: PROSTATIC SPECIFIC ANTIGEN
     Route: 042
  2. REMICADE [Suspect]
     Indication: PSORIASIS
     Route: 042
  3. LYRICA [Concomitant]
     Indication: NEUROPATHY PERIPHERAL
  4. COREG [Concomitant]
     Indication: HYPERTENSION
  5. DIOVAN [Concomitant]
     Indication: HYPERTENSION
  6. LEVOTHYROXINE SODIUM [Concomitant]
     Indication: HYPOTHYROIDISM
  7. AVODART [Concomitant]
     Indication: PROSTATOMEGALY

REACTIONS (1)
  - HISTOPLASMOSIS [None]
